FAERS Safety Report 18683052 (Version 1)
Quarter: 2020Q4

REPORT INFORMATION
  Report Type: Spontaneous
  Country: US (occurrence: US)
  Receive Date: 20201230
  Receipt Date: 20201230
  Transmission Date: 20210114
  Serious: Yes (Other)
  Sender: FDA-Public Use
  Company Number: US-BAYER-2020-281498

PATIENT
  Age: 31 Year
  Sex: Female

DRUGS (1)
  1. LOTRIMIN AF ANTIFUNGAL [Suspect]
     Active Substance: MICONAZOLE NITRATE
     Indication: STAPHYLOCOCCAL INFECTION
     Dosage: UNK
     Route: 061

REACTIONS (7)
  - Staphylococcal infection [None]
  - Product use in unapproved indication [Unknown]
  - Gastric ulcer [None]
  - Off label use [None]
  - Drug effective for unapproved indication [None]
  - Drug ineffective [None]
  - Pustule [None]
